FAERS Safety Report 24800813 (Version 4)
Quarter: 2025Q3

REPORT INFORMATION
  Report Type: Spontaneous
  Country: CA (occurrence: CA)
  Receive Date: 20250102
  Receipt Date: 20250716
  Transmission Date: 20251021
  Serious: Yes (Other)
  Sender: PFIZER
  Company Number: CA-PFIZER INC-202400335565

PATIENT
  Age: 69 Year
  Sex: Male

DRUGS (15)
  1. RUXIENCE [Suspect]
     Active Substance: RITUXIMAB-PVVR
     Indication: Rheumatoid arthritis
     Route: 042
     Dates: start: 20240516, end: 20240530
  2. RUXIENCE [Suspect]
     Active Substance: RITUXIMAB-PVVR
     Route: 042
     Dates: start: 20250108
  3. ARAVA [Concomitant]
     Active Substance: LEFLUNOMIDE
  4. BRICANYL [Concomitant]
     Active Substance: TERBUTALINE SULFATE
  5. CELEBREX [Concomitant]
     Active Substance: CELECOXIB
  6. CELECOXIB [Concomitant]
     Active Substance: CELECOXIB
  7. FOLIC ACID [Concomitant]
     Active Substance: FOLIC ACID
  8. FLUTICASONE PROPIONATE [Concomitant]
     Active Substance: FLUTICASONE PROPIONATE
  9. LANSOPRAZOLE [Concomitant]
     Active Substance: LANSOPRAZOLE
  10. MYCOPHENOLIC ACID [Concomitant]
     Active Substance: MYCOPHENOLIC ACID
  11. PLAQUENIL [Concomitant]
     Active Substance: HYDROXYCHLOROQUINE SULFATE
  12. RAMIPRIL [Concomitant]
     Active Substance: RAMIPRIL
  13. RISEDRONATE SODIUM [Concomitant]
     Active Substance: RISEDRONATE SODIUM
  14. SULFAMETHOXAZOLE [Concomitant]
     Active Substance: SULFAMETHOXAZOLE
  15. GLYCOPYRRONIUM\INDACATEROL [Concomitant]
     Active Substance: GLYCOPYRRONIUM\INDACATEROL

REACTIONS (1)
  - Interstitial lung disease [Unknown]
